FAERS Safety Report 10725023 (Version 2)
Quarter: 2015Q1

REPORT INFORMATION
  Report Type: Spontaneous
  Country: FR (occurrence: FR)
  Receive Date: 20150120
  Receipt Date: 20150128
  Transmission Date: 20150721
  Serious: Yes (Hospitalization)
  Sender: FDA-Public Use
  Company Number: FR-TEVA-534960ISR

PATIENT
  Age: 89 Year
  Sex: Female

DRUGS (5)
  1. TRIVASTAL 50 MG [Suspect]
     Active Substance: PIRIBEDIL
     Indication: PARKINSON^S DISEASE
     Dosage: 1 DOSAGE FORMS DAILY; AT NIGHT
     Route: 048
     Dates: start: 20141212, end: 20141214
  2. MODOPAR 62.5 (50 MG/12.5 MG) [Suspect]
     Active Substance: BENSERAZIDE HYDROCHLORIDE\LEVODOPA
     Indication: PARKINSON^S DISEASE
     Dosage: 4 DOSAGE FORMS DAILY; 1DF=BENSERAZIDE HYDROCHLORIDE 12.5 MG+ LEVODOPA 50 MG
     Route: 048
     Dates: end: 20150102
  3. TRIVASTAL 50 MG [Suspect]
     Active Substance: PIRIBEDIL
     Dosage: 6 TABLET DAILY; 3 TABLETS IN THE MORNING AND 3 TABLETS IN THE EVENING
     Route: 048
     Dates: start: 20141215, end: 20141230
  4. AZILECT [Suspect]
     Active Substance: RASAGILINE MESYLATE
     Indication: PARKINSON^S DISEASE
     Dosage: 1 DOSAGE FORMS DAILY;
     Route: 048
     Dates: end: 20150102
  5. NEUPRO [Suspect]
     Active Substance: ROTIGOTINE
     Indication: PARKINSON^S DISEASE
     Dosage: 1 DOSAGE FORMS DAILY;
     Route: 062
     Dates: end: 20150102

REACTIONS (3)
  - Choreoathetosis [Recovered/Resolved]
  - Medication error [Recovered/Resolved]
  - Overdose [Recovered/Resolved]

NARRATIVE: CASE EVENT DATE: 20141215
